FAERS Safety Report 17905607 (Version 1)
Quarter: 2020Q2

REPORT INFORMATION
  Report Type: Spontaneous
  Country: US (occurrence: US)
  Receive Date: 20200616
  Receipt Date: 20200616
  Transmission Date: 20200714
  Serious: Yes (Hospitalization)
  Sender: FDA-Public Use
  Company Number: None

PATIENT
  Sex: Female

DRUGS (5)
  1. GABAPENTIN. [Concomitant]
     Active Substance: GABAPENTIN
  2. HYDROCO/APAP [Concomitant]
     Active Substance: ACETAMINOPHEN\HYDROCODONE
  3. TIZANIDINE. [Concomitant]
     Active Substance: TIZANIDINE
  4. DULOXETINE. [Concomitant]
     Active Substance: DULOXETINE
  5. SPRYCEL [Suspect]
     Active Substance: DASATINIB
     Indication: NEOPLASM MALIGNANT
     Route: 048
     Dates: start: 20200319

REACTIONS (1)
  - Therapy interrupted [None]
